FAERS Safety Report 18043404 (Version 1)
Quarter: 2020Q3

REPORT INFORMATION
  Report Type: Spontaneous
  Country: IT (occurrence: IT)
  Receive Date: 20200720
  Receipt Date: 20200720
  Transmission Date: 20201103
  Serious: Yes (Other)
  Sender: FDA-Public Use
  Company Number: IT-SA-2020SA185849

PATIENT

DRUGS (1)
  1. OMNIC [Suspect]
     Active Substance: TAMSULOSIN HYDROCHLORIDE
     Indication: MICTURITION DISORDER
     Dosage: 0.4 MG, QD
     Route: 048
     Dates: start: 20200120, end: 20200229

REACTIONS (2)
  - Erectile dysfunction [Not Recovered/Not Resolved]
  - Penile discomfort [Not Recovered/Not Resolved]

NARRATIVE: CASE EVENT DATE: 202001
